FAERS Safety Report 7822139-0 (Version None)
Quarter: 2011Q4

REPORT INFORMATION
  Report Type: 
  Country: None (occurrence: None)
  Receive Date: 20111018
  Receipt Date: 20110621
  Transmission Date: 20120403
  Serious: No
  Sender: FDA-Public Use
  Company Number: US-ASTRAZENECA-2011SE37310

PATIENT
  Age: 86 Year
  Sex: Female
  Weight: 56.7 kg

DRUGS (3)
  1. SYMBICORT [Suspect]
     Indication: CHRONIC OBSTRUCTIVE PULMONARY DISEASE
     Dosage: 160/4.5 TWO PUFFS TWO TIMES A DAY
     Route: 055
     Dates: start: 20110501
  2. OTHER CONCOMITANT MEDS [Concomitant]
  3. METFORMIN HCL [Concomitant]

REACTIONS (5)
  - MUSCLE SPASMS [None]
  - HYPERHIDROSIS [None]
  - NAUSEA [None]
  - BALANCE DISORDER [None]
  - DIZZINESS [None]
